FAERS Safety Report 15892740 (Version 1)
Quarter: 2019Q1

REPORT INFORMATION
  Report Type: Report from Study
  Country: US (occurrence: US)
  Receive Date: 20190130
  Receipt Date: 20190130
  Transmission Date: 20190417
  Serious: No
  Sender: FDA-Public Use
  Company Number: US-EXELIXIS-CABO-18015541

PATIENT
  Sex: Male

DRUGS (1)
  1. CABOMETYX [Suspect]
     Active Substance: CABOZANTINIB S-MALATE
     Indication: RENAL CANCER
     Dosage: UNK, QD
     Route: 048

REACTIONS (9)
  - Pleural effusion [Unknown]
  - Aortic aneurysm [Unknown]
  - Malignant neoplasm progression [Unknown]
  - Muscular weakness [Unknown]
  - Liver function test increased [Unknown]
  - Hyponatraemia [Unknown]
  - Hypertension [Unknown]
  - Skin lesion [Unknown]
  - Hypothyroidism [Unknown]
